FAERS Safety Report 24754704 (Version 1)
Quarter: 2024Q4

REPORT INFORMATION
  Report Type: Spontaneous
  Country: VE (occurrence: VE)
  Receive Date: 20241219
  Receipt Date: 20241219
  Transmission Date: 20250115
  Serious: Yes (Life-Threatening, Other)
  Sender: NOVARTIS
  Company Number: VE-002147023-NVSC2024VE214481

PATIENT
  Sex: Male

DRUGS (1)
  1. GLIVEC [Suspect]
     Active Substance: IMATINIB MESYLATE
     Indication: Chronic myeloid leukaemia
     Dosage: 400 MG (4 X 100MG)
     Route: 065

REACTIONS (9)
  - Haemoglobin decreased [Unknown]
  - Syncope [Unknown]
  - Chest pain [Recovering/Resolving]
  - Back pain [Recovering/Resolving]
  - Vision blurred [Recovering/Resolving]
  - Muscular weakness [Recovering/Resolving]
  - Illness [Unknown]
  - Dizziness [Unknown]
  - Faeces discoloured [Unknown]
